FAERS Safety Report 4654314-0 (Version None)
Quarter: 2005Q2

REPORT INFORMATION
  Report Type: 
  Country: None (occurrence: None)
  Receive Date: 20050404
  Receipt Date: 20041220
  Transmission Date: 20051028
  Serious: No
  Sender: FDA-Public Use
  Company Number: USA041182728

PATIENT
  Age: 46 Year
  Sex: Female
  Weight: 78 kg

DRUGS (7)
  1. PROZAC [Suspect]
     Indication: DEPRESSION
     Dosage: 40 MG
     Dates: start: 19970101, end: 20010101
  2. CYMBALTA [Suspect]
     Indication: DEPRESSION
     Dosage: 60 MG DAY
     Dates: end: 20041213
  3. METHADONE [Concomitant]
  4. MENEST [Concomitant]
  5. PHENERGAN [Concomitant]
  6. XANAX (ALPRAZOLAM DUM) [Concomitant]
  7. ZIAC [Concomitant]

REACTIONS (13)
  - ANOREXIA [None]
  - ANXIETY [None]
  - CHEST PAIN [None]
  - COLITIS ULCERATIVE [None]
  - DECREASED ACTIVITY [None]
  - DEHYDRATION [None]
  - DEPRESSION [None]
  - DRUG INEFFECTIVE [None]
  - FEELING ABNORMAL [None]
  - INSOMNIA [None]
  - PANIC ATTACK [None]
  - SOMNOLENCE [None]
  - WEIGHT DECREASED [None]
